FAERS Safety Report 8481735-0 (Version None)
Quarter: 2012Q3

REPORT INFORMATION
  Report Type: 
  Country: None (occurrence: None)
  Receive Date: 20120702
  Receipt Date: 20120626
  Transmission Date: 20120928
  Serious: Yes (Hospitalization, Other)
  Sender: FDA-Public Use
  Company Number: US-TEVA-345125USA

PATIENT
  Sex: Male

DRUGS (2)
  1. CLOZAPINE [Suspect]
     Route: 048
     Dates: start: 20070801, end: 20111201
  2. CLOZAPINE [Suspect]
     Dates: start: 20120401, end: 20120101

REACTIONS (4)
  - PSYCHOTIC DISORDER [None]
  - AGGRESSION [None]
  - DELUSION [None]
  - CONVULSION [None]
